FAERS Safety Report 10159718 (Version 3)
Quarter: 2014Q3

REPORT INFORMATION
  Report Type: Spontaneous
  Country: GB (occurrence: None)
  Receive Date: 20140506
  Receipt Date: 20140912
  Transmission Date: 20150326
  Serious: Yes (Hospitalization, Other)
  Sender: FDA-Public Use
  Company Number: FK201401568

PATIENT
  Age: 87 Year
  Sex: Female

DRUGS (7)
  1. FUROSEMIDE. [Suspect]
     Active Substance: FUROSEMIDE
     Indication: HYPERTENSION
     Dosage: UNKNOWN
     Route: 048
     Dates: start: 20111012, end: 201310
  2. FUROSEMIDE. [Suspect]
     Active Substance: FUROSEMIDE
     Indication: PULMONARY HYPERTENSION
     Dosage: UNKNOWN
     Route: 048
     Dates: start: 20111012, end: 201310
  3. FUROSEMIDE. [Suspect]
     Active Substance: FUROSEMIDE
     Indication: BLOOD POTASSIUM INCREASED
     Dosage: UNKNOWN
     Route: 048
     Dates: start: 20111012, end: 201310
  4. FUROSEMIDE. [Suspect]
     Active Substance: FUROSEMIDE
     Indication: CARDIAC FAILURE
     Dosage: UNKNOWN
     Route: 048
     Dates: start: 20111012, end: 201310
  5. DOUBLEBASE [Concomitant]
     Active Substance: ISOPROPYL MYRISTATE\PARAFFIN
  6. LACRI-LUBE [Concomitant]
  7. SALBUTAMOL [Concomitant]
     Active Substance: ALBUTEROL

REACTIONS (8)
  - Blood urine present [None]
  - Respiratory tract infection [None]
  - Confusional state [None]
  - Oedema [None]
  - Dysuria [None]
  - Joint swelling [None]
  - Therapy cessation [None]
  - Face injury [None]

NARRATIVE: CASE EVENT DATE: 20130702
